FAERS Safety Report 12122373 (Version 2)
Quarter: 2016Q1

REPORT INFORMATION
  Report Type: Spontaneous
  Country: FI (occurrence: FI)
  Receive Date: 20160226
  Receipt Date: 20160331
  Transmission Date: 20160526
  Serious: Yes (Hospitalization, Other)
  Sender: FDA-Public Use
  Company Number: FI-ASTRAZENECA-2016SE18586

PATIENT
  Age: 67 Year
  Sex: Male
  Weight: 106 kg

DRUGS (6)
  1. INSULIN GLARGINE [Concomitant]
     Active Substance: INSULIN GLARGINE
  2. INSULIN ASPART [Concomitant]
     Active Substance: INSULIN ASPART
  3. BYDUREON [Suspect]
     Active Substance: EXENATIDE
     Indication: BLOOD INSULIN INCREASED
     Route: 065
     Dates: start: 20151127, end: 20160219
  4. BYDUREON [Suspect]
     Active Substance: EXENATIDE
     Indication: OVERWEIGHT
     Route: 065
     Dates: start: 20151127, end: 20160219
  5. METFORMIN [Concomitant]
     Active Substance: METFORMIN HYDROCHLORIDE
  6. BYDUREON [Suspect]
     Active Substance: EXENATIDE
     Indication: BLOOD GLUCOSE ABNORMAL
     Route: 065
     Dates: start: 20151127, end: 20160219

REACTIONS (6)
  - Hypotension [Unknown]
  - Diarrhoea [Unknown]
  - Weight decreased [Unknown]
  - Obstruction gastric [Recovered/Resolved]
  - C-reactive protein increased [Unknown]
  - Intestinal obstruction [Recovered/Resolved]

NARRATIVE: CASE EVENT DATE: 201601
